FAERS Safety Report 13676388 (Version 6)
Quarter: 2018Q2

REPORT INFORMATION
  Report Type: Report from Study
  Country: US (occurrence: US)
  Receive Date: 20170622
  Receipt Date: 20180523
  Transmission Date: 20180711
  Serious: Yes (Other)
  Sender: FDA-Public Use
  Company Number: US-ROCHE-1950602

PATIENT
  Age: 55 Year
  Sex: Female
  Weight: 48.58 kg

DRUGS (3)
  1. OCREVUS [Suspect]
     Active Substance: OCRELIZUMAB
     Route: 042
     Dates: start: 20171212
  2. OCREVUS [Suspect]
     Active Substance: OCRELIZUMAB
     Indication: SECONDARY PROGRESSIVE MULTIPLE SCLEROSIS
     Dosage: 300MG IN 2 WEEKS
     Route: 042
     Dates: start: 20170606
  3. OCREVUS [Suspect]
     Active Substance: OCRELIZUMAB
     Indication: RELAPSING MULTIPLE SCLEROSIS
     Dosage: THEN 600 MG EVERY 6 MONTHS,?ONGOING
     Route: 042

REACTIONS (16)
  - Depressed level of consciousness [Not Recovered/Not Resolved]
  - Infusion related reaction [Unknown]
  - Vertigo [Recovered/Resolved]
  - Condition aggravated [Unknown]
  - Dizziness [Unknown]
  - Nuclear magnetic resonance imaging brain abnormal [Not Recovered/Not Resolved]
  - Fatigue [Not Recovered/Not Resolved]
  - Multiple sclerosis [Not Recovered/Not Resolved]
  - Asthenia [Unknown]
  - Coordination abnormal [Unknown]
  - Wheelchair user [Unknown]
  - Intentional product use issue [Unknown]
  - Asthenia [Unknown]
  - Ill-defined disorder [Unknown]
  - Off label use [Unknown]
  - Reading disorder [Unknown]

NARRATIVE: CASE EVENT DATE: 20170609
